FAERS Safety Report 6555648-5 (Version None)
Quarter: 2010Q1

REPORT INFORMATION
  Report Type: 
  Country: None (occurrence: None)
  Receive Date: 20100128
  Receipt Date: 20100114
  Transmission Date: 20100710
  Serious: Yes (Hospitalization)
  Sender: FDA-Public Use
  Company Number: PHHO2010IT00928

PATIENT
  Sex: Male
  Weight: 137.6 kg

DRUGS (13)
  1. DIOVAN T30230+CAPS [Suspect]
     Indication: HYPERTENSION
     Dosage: UNK
  2. BENAZEPRIL T25892+TAB [Suspect]
     Indication: HYPERTENSION
     Dosage: UNK
  3. LIMPIDEX [Concomitant]
  4. LOBIVON [Concomitant]
  5. LASIX [Concomitant]
  6. CARDIOASPIRINA [Concomitant]
  7. ALLOPURINOL [Concomitant]
  8. TAREG [Concomitant]
  9. ESKIM [Concomitant]
  10. ADALAT [Concomitant]
  11. ATORVASTATIN CALCIUM [Concomitant]
  12. NOVORAPID [Concomitant]
  13. LANTUS [Concomitant]

REACTIONS (5)
  - ASTHENIA [None]
  - BLOOD PRESSURE INADEQUATELY CONTROLLED [None]
  - HYPOVOLAEMIA [None]
  - OEDEMA PERIPHERAL [None]
  - RENAL FAILURE CHRONIC [None]
